FAERS Safety Report 4911526-6 (Version None)
Quarter: 2006Q1

REPORT INFORMATION
  Report Type: 
  Country: None (occurrence: None)
  Receive Date: 20060214
  Receipt Date: 20050823
  Transmission Date: 20060701
  Serious: Yes (Disabling, Other)
  Sender: FDA-Public Use
  Company Number: US-MERCK-0508USA03953

PATIENT
  Age: 52 Year
  Sex: Male
  Weight: 86 kg

DRUGS (10)
  1. VIOXX [Suspect]
     Indication: ARTHRALGIA
     Route: 048
     Dates: start: 20010613, end: 20040907
  2. VIOXX [Suspect]
     Indication: JOINT SWELLING
     Route: 048
     Dates: start: 20010613, end: 20040907
  3. MAVIK [Concomitant]
     Route: 065
     Dates: start: 20030815
  4. MICARDIS [Concomitant]
     Route: 065
     Dates: start: 20030401
  5. TOPROL-XL [Concomitant]
     Route: 065
     Dates: start: 20031114, end: 20040105
  6. ZOLOFT [Concomitant]
     Indication: DEPRESSION
     Route: 065
     Dates: start: 20010203
  7. HYDROCHLOROTHIAZIDE [Concomitant]
     Route: 065
  8. NOVOLIN 70/30 [Concomitant]
     Indication: DIABETES MELLITUS
     Route: 065
  9. VIAGRA [Concomitant]
     Route: 065
  10. LIPITOR [Concomitant]
     Route: 065
     Dates: start: 20010329

REACTIONS (3)
  - BLOOD TRIGLYCERIDES INCREASED [None]
  - CARDIAC DISORDER [None]
  - TRANSIENT ISCHAEMIC ATTACK [None]
